FAERS Safety Report 4468008-8 (Version None)
Quarter: 2004Q4

REPORT INFORMATION
  Report Type: 
  Country: None (occurrence: None)
  Receive Date: 20041004
  Receipt Date: 20040922
  Transmission Date: 20050328
  Serious: Yes (Death)
  Sender: FDA-Public Use
  Company Number: 2004235077IN

PATIENT
  Age: 65 Year
  Sex: Male

DRUGS (1)
  1. CLINDAMYCIN [Suspect]
     Dosage: 300 MG, BID, INTRAMUSCULAR
     Dates: start: 20040801, end: 20040801

REACTIONS (4)
  - ABDOMINAL DISTENSION [None]
  - CONDITION AGGRAVATED [None]
  - DIARRHOEA [None]
  - DYSPNOEA [None]
